FAERS Safety Report 7117247-6 (Version None)
Quarter: 2010Q4

REPORT INFORMATION
  Report Type: 
  Country: None (occurrence: None)
  Receive Date: 20101122
  Receipt Date: 20101109
  Transmission Date: 20110411
  Serious: Yes (Hospitalization)
  Sender: FDA-Public Use
  Company Number: FR-CELGENEUS-056-21880-10111258

PATIENT
  Sex: Female

DRUGS (11)
  1. REVLIMID [Suspect]
     Indication: POEMS SYNDROME
     Route: 048
     Dates: start: 20081015, end: 20090201
  2. REVLIMID [Suspect]
     Route: 048
  3. REVLIMID [Suspect]
     Route: 048
     Dates: end: 20101016
  4. NEXIUM [Suspect]
     Route: 048
     Dates: start: 20080101, end: 20101016
  5. NEO RECORMON [Concomitant]
     Route: 065
  6. EFFEXOR [Concomitant]
     Route: 065
  7. SIMVASTATIN [Concomitant]
     Route: 065
  8. ABUFENE [Concomitant]
     Route: 065
  9. LEXOMIL [Concomitant]
     Route: 065
  10. EFFERALGAN CODEINE [Concomitant]
     Route: 065
  11. TRIATEC [Concomitant]
     Route: 065

REACTIONS (2)
  - AUTOIMMUNE THROMBOCYTOPENIA [None]
  - PANCYTOPENIA [None]
